FAERS Safety Report 6891494-0 (Version None)
Quarter: 2010Q3

REPORT INFORMATION
  Report Type: 
  Country: None (occurrence: None)
  Receive Date: 20100731
  Receipt Date: 20070720
  Transmission Date: 20110219
  Serious: No
  Sender: FDA-Public Use
  Company Number: US-PFIZER INC-2007063730

PATIENT
  Sex: Female

DRUGS (7)
  1. FLAGYL [Suspect]
  2. CIPROFLOXACIN [Concomitant]
  3. SECTRAL [Concomitant]
  4. LOTREL [Concomitant]
  5. ALL OTHER THERAPEUTIC PRODUCTS [Concomitant]
  6. ASPIRIN [Concomitant]
  7. GEMFIBROZIL [Concomitant]

REACTIONS (2)
  - DYSGEUSIA [None]
  - HEADACHE [None]
